FAERS Safety Report 15736742 (Version 3)
Quarter: 2019Q4

REPORT INFORMATION
  Report Type: Spontaneous
  Country: US (occurrence: US)
  Receive Date: 20181218
  Receipt Date: 20191023
  Transmission Date: 20200122
  Serious: Yes (Other)
  Sender: FDA-Public Use
  Company Number: US-PFIZER INC-2018518417

PATIENT
  Age: 55 Year
  Sex: Male

DRUGS (37)
  1. CARVEDILOL. [Concomitant]
     Active Substance: CARVEDILOL
     Dosage: UNK
     Dates: start: 20120430
  2. METRONIDAZOLE. [Concomitant]
     Active Substance: METRONIDAZOLE
     Indication: ANTIBIOTIC THERAPY
     Dosage: UNK
     Dates: start: 20141217
  3. PAXIL [Concomitant]
     Active Substance: PAROXETINE HYDROCHLORIDE
     Indication: AFFECTIVE DISORDER
     Dosage: UNK
     Dates: start: 20141222
  4. PREDNISONE. [Concomitant]
     Active Substance: PREDNISONE
     Indication: ACTINIC KERATOSIS
  5. IMITREX [Concomitant]
     Active Substance: SUMATRIPTAN SUCCINATE
     Indication: MIGRAINE
     Dosage: UNK
     Dates: start: 20080818
  6. LIPITOR [Concomitant]
     Active Substance: ATORVASTATIN CALCIUM
     Indication: DYSLIPIDAEMIA
     Dosage: UNK
     Dates: start: 20140103
  7. FENOFIBRATE. [Concomitant]
     Active Substance: FENOFIBRATE
     Indication: DYSLIPIDAEMIA
     Dosage: UNK
     Dates: start: 20130615
  8. HYDROCORTISONE. [Concomitant]
     Active Substance: HYDROCORTISONE
     Indication: PRURITUS
     Dosage: UNK
     Dates: start: 20140819
  9. PREDNISONE. [Concomitant]
     Active Substance: PREDNISONE
     Indication: RHINITIS ALLERGIC
  10. FLOMAX [Concomitant]
     Active Substance: TAMSULOSIN HYDROCHLORIDE
     Indication: BENIGN PROSTATIC HYPERPLASIA
     Dosage: UNK
     Dates: start: 20151204
  11. TESTOSTERONE CIPIONATE [Concomitant]
     Active Substance: TESTOSTERONE
     Indication: ERECTILE DYSFUNCTION
     Dosage: UNK
     Dates: start: 20120105
  12. TESTOSTERONE CIPIONATE [Concomitant]
     Active Substance: TESTOSTERONE
     Indication: HYPOGONADISM
  13. TOVIAZ [Concomitant]
     Active Substance: FESOTERODINE FUMARATE
     Indication: BENIGN PROSTATIC HYPERPLASIA
     Dosage: UNK
     Dates: start: 20160229
  14. ASPIRIN [ACETYLSALICYLIC ACID] [Concomitant]
     Active Substance: ASPIRIN
     Indication: HYPERTENSION
     Dosage: UNK
     Dates: start: 20140606
  15. KEFLEX [Concomitant]
     Active Substance: CEPHALEXIN
     Indication: ANTIBIOTIC THERAPY
     Dosage: UNK
     Dates: start: 20161201
  16. CIPROFLOXACIN HCL [Concomitant]
     Active Substance: CIPROFLOXACIN HYDROCHLORIDE
     Indication: LOWER URINARY TRACT SYMPTOMS
  17. CLARITINE [Concomitant]
     Active Substance: LORATADINE
     Indication: SINUSITIS
     Dosage: UNK
     Dates: start: 20140103
  18. CIPROFLOXACIN HCL [Concomitant]
     Active Substance: CIPROFLOXACIN HYDROCHLORIDE
     Indication: BENIGN PROSTATIC HYPERPLASIA
     Dosage: UNK
     Dates: start: 20141217
  19. CLOTRIMAZOLE AND BETAMETHASONE [Concomitant]
     Active Substance: BETAMETHASONE\CLOTRIMAZOLE
     Indication: ROUTINE HEALTH MAINTENANCE
     Dosage: UNK
     Dates: start: 20160523
  20. ERYTHROMYCIN. [Concomitant]
     Active Substance: ERYTHROMYCIN
     Indication: ANTIBIOTIC THERAPY
     Dosage: UNK
     Dates: start: 20140819
  21. FLONASE [Concomitant]
     Active Substance: FLUTICASONE PROPIONATE
     Indication: SINUSITIS
     Dosage: UNK
     Dates: start: 20140103
  22. VIAGRA [Suspect]
     Active Substance: SILDENAFIL CITRATE
     Indication: ERECTILE DYSFUNCTION
     Dosage: UNK (50-100 MG)
     Route: 048
     Dates: start: 20010305, end: 20141123
  23. XANAX [Concomitant]
     Active Substance: ALPRAZOLAM
     Indication: AFFECTIVE DISORDER
     Dosage: UNK
     Dates: start: 20150827
  24. BENICAR [Concomitant]
     Active Substance: OLMESARTAN MEDOXOMIL
     Indication: ROUTINE HEALTH MAINTENANCE
     Dosage: UNK
     Dates: start: 20130910
  25. PREDNISONE. [Concomitant]
     Active Substance: PREDNISONE
     Indication: MULTIPLE ALLERGIES
     Dosage: UNK
     Dates: start: 20150406
  26. HYDROCORTISONE ACETATE. [Concomitant]
     Active Substance: HYDROCORTISONE ACETATE
     Dosage: UNK
     Dates: start: 20111119
  27. KENALOG [Concomitant]
     Active Substance: TRIAMCINOLONE ACETONIDE
     Indication: MULTIPLE ALLERGIES
     Dosage: UNK
     Dates: start: 20140606
  28. CIALIS [Suspect]
     Active Substance: TADALAFIL
     Indication: ERECTILE DYSFUNCTION
     Dosage: 5 MG, UNK
     Route: 048
     Dates: start: 20150423, end: 201703
  29. LEVOXYL [Concomitant]
     Active Substance: LEVOTHYROXINE SODIUM
     Indication: ROUTINE HEALTH MAINTENANCE
     Dosage: UNK
     Dates: start: 20130930
  30. PREDNISONE. [Concomitant]
     Active Substance: PREDNISONE
     Indication: EXOSTOSIS
  31. PREDNISONE. [Concomitant]
     Active Substance: PREDNISONE
     Indication: DIVERTICULUM INTESTINAL
  32. FLOMAX [Concomitant]
     Active Substance: TAMSULOSIN HYDROCHLORIDE
     Indication: LOWER URINARY TRACT SYMPTOMS
  33. FINASTERIDE. [Concomitant]
     Active Substance: FINASTERIDE
     Indication: BENIGN PROSTATIC HYPERPLASIA
     Dosage: UNK
     Dates: start: 20151204
  34. FINASTERIDE. [Concomitant]
     Active Substance: FINASTERIDE
     Indication: LOWER URINARY TRACT SYMPTOMS
  35. IBUPROFEN. [Concomitant]
     Active Substance: IBUPROFEN
     Indication: EXOSTOSIS
     Dosage: UNK
     Dates: start: 20120229
  36. LIDOCAINE. [Concomitant]
     Active Substance: LIDOCAINE
     Indication: PAIN
     Dosage: UNK
     Dates: start: 20111123
  37. VITAMIN E [Concomitant]
     Active Substance: .ALPHA.-TOCOPHEROL
     Dosage: UNK
     Dates: start: 20160824

REACTIONS (2)
  - Depression [Unknown]
  - Malignant melanoma [Unknown]

NARRATIVE: CASE EVENT DATE: 20161216
